FAERS Safety Report 7810297-3 (Version None)
Quarter: 2011Q4

REPORT INFORMATION
  Report Type: 
  Country: None (occurrence: None)
  Receive Date: 20111012
  Receipt Date: 20110929
  Transmission Date: 20120403
  Serious: Yes (Other)
  Sender: FDA-Public Use
  Company Number: BR-ROCHE-711105

PATIENT
  Sex: Female
  Weight: 81 kg

DRUGS (25)
  1. MABTHERA [Suspect]
     Dosage: DOSE:1000 MG/ML
     Route: 042
     Dates: start: 20100701, end: 20100715
  2. SPIRIVA [Concomitant]
  3. LYRICA [Concomitant]
  4. MABTHERA [Suspect]
     Indication: SYSTEMIC LUPUS ERYTHEMATOSUS
     Dosage: DOSE: 1000 MG/ML;FORM:INFUSION
     Route: 042
  5. LEUKERAN [Concomitant]
  6. LIVIAL [Concomitant]
  7. MYCOPHENOLATE MOFETIL (CELLCEPT) [Concomitant]
  8. CALCIUM CARBONATE [Concomitant]
  9. OMEPRAZOLE [Concomitant]
  10. HYDROCORTISONE [Concomitant]
     Indication: PREMEDICATION
  11. CLONIDINE HYDROCHLORIDE [Concomitant]
  12. DOMPERIDONE [Concomitant]
  13. MORPHINE SULFATE [Concomitant]
  14. MABTHERA [Suspect]
     Dosage: DOSE: 1000 MG/ML
     Route: 042
     Dates: start: 20080101, end: 20081201
  15. MABTHERA [Suspect]
     Dosage: DOSE:1000 MG/ML
     Route: 042
     Dates: start: 20101101, end: 20101101
  16. MABTHERA [Suspect]
     Dosage: DOSE:1000 MG/ML
     Route: 042
  17. METICORTEN [Concomitant]
  18. APRESOLINA [Concomitant]
  19. SERETIDE [Concomitant]
  20. ADALAT [Concomitant]
  21. METICORTEN [Concomitant]
  22. DIOVAN [Concomitant]
  23. VENLIFT [Concomitant]
  24. SERETIDE [Concomitant]
  25. SYNTHROID [Concomitant]

REACTIONS (15)
  - HYPOTENSION [None]
  - SYSTEMIC LUPUS ERYTHEMATOSUS [None]
  - URINARY TRACT INFECTION [None]
  - CHROMATURIA [None]
  - HEADACHE [None]
  - SYNCOPE [None]
  - ASTHENIA [None]
  - CHILLS [None]
  - PYREXIA [None]
  - HYPERTENSIVE CRISIS [None]
  - PAIN [None]
  - VOMITING [None]
  - BREAST DISORDER [None]
  - INTERVERTEBRAL DISC PROTRUSION [None]
  - NEPHROLITHIASIS [None]
